FAERS Safety Report 10211198 (Version 1)
Quarter: 2014Q2

REPORT INFORMATION
  Report Type: Spontaneous
  Country: US (occurrence: None)
  Receive Date: 20140530
  Receipt Date: 20140530
  Transmission Date: 20141212
  Serious: No
  Sender: FDA-Public Use
  Company Number: None

PATIENT
  Age: 19 Year
  Sex: Female
  Weight: 56.25 kg

DRUGS (2)
  1. NUVA RING [Suspect]
     Indication: CONTRACEPTION
     Dosage: 1 RING, 3 WEEKS IN 1 OUT
     Route: 067
     Dates: start: 20140312, end: 20140528
  2. CLARITEN [Concomitant]

REACTIONS (7)
  - Muscle spasms [None]
  - Weight increased [None]
  - Breast tenderness [None]
  - Mood altered [None]
  - Depression [None]
  - Anxiety [None]
  - Stress [None]
